FAERS Safety Report 8209685-5 (Version None)
Quarter: 2012Q1

REPORT INFORMATION
  Report Type: 
  Country: None (occurrence: None)
  Receive Date: 20120314
  Receipt Date: 20120307
  Transmission Date: 20120608
  Serious: Yes (Hospitalization)
  Sender: FDA-Public Use
  Company Number: JP-BRISTOL-MYERS SQUIBB COMPANY-14748628

PATIENT
  Age: 69 Year
  Sex: Female
  Weight: 61 kg

DRUGS (2)
  1. SPRYCEL [Suspect]
     Indication: CHRONIC MYELOID LEUKAEMIA
     Dosage: 20MAY09-01JUL09:100MG/DAY,23JUL09-26AUG09:50MG/DAY,09SEP09-NI:50MG,5NOV09-29DEC09,21JAN10-10FEB10
     Route: 048
     Dates: start: 20090520, end: 20110504
  2. TASIGNA [Concomitant]
     Indication: CHRONIC MYELOID LEUKAEMIA
     Dosage: CAP
     Route: 048
     Dates: start: 20110505

REACTIONS (5)
  - RESPIRATORY FAILURE [None]
  - HAEMATURIA [None]
  - CYSTITIS [None]
  - PULMONARY HAEMORRHAGE [None]
  - PLATELET COUNT DECREASED [None]
